FAERS Safety Report 10007459 (Version 8)
Quarter: 2015Q4

REPORT INFORMATION
  Report Type: Report from Study
  Country: US (occurrence: US)
  Receive Date: 20140313
  Receipt Date: 20151020
  Transmission Date: 20160304
  Serious: Yes (Hospitalization, Other)
  Sender: FDA-Public Use
  Company Number: US-SANOFI-AVENTIS-2013SA082229

PATIENT
  Age: 48 Year
  Sex: Male

DRUGS (2)
  1. AUBAGIO [Suspect]
     Active Substance: TERIFLUNOMIDE
     Indication: MULTIPLE SCLEROSIS
     Route: 048
     Dates: end: 20151009
  2. AUBAGIO [Suspect]
     Active Substance: TERIFLUNOMIDE
     Indication: MULTIPLE SCLEROSIS
     Dosage: PRODUCT STARTED ON 3RD JUNE.
     Route: 048
     Dates: start: 20130603

REACTIONS (17)
  - Asthenia [Recovering/Resolving]
  - Constipation [Recovering/Resolving]
  - Temperature intolerance [Not Recovered/Not Resolved]
  - Abdominal discomfort [Not Recovered/Not Resolved]
  - Dysuria [Recovering/Resolving]
  - Multiple sclerosis relapse [Unknown]
  - Gastrointestinal motility disorder [Recovering/Resolving]
  - Vitamin D deficiency [Unknown]
  - Drug dose omission [Unknown]
  - Urinary retention [Recovering/Resolving]
  - Muscular weakness [Unknown]
  - Paraesthesia [Unknown]
  - Furuncle [Recovering/Resolving]
  - Urinary tract infection [Unknown]
  - Pollakiuria [Recovering/Resolving]
  - Gait disturbance [Unknown]
  - Acne [Recovering/Resolving]
